FAERS Safety Report 18955122 (Version 2)
Quarter: 2023Q1

REPORT INFORMATION
  Report Type: Report from Study
  Country: US (occurrence: US)
  Receive Date: 20210301
  Receipt Date: 20230102
  Transmission Date: 20230417
  Serious: No
  Sender: FDA-Public Use
  Company Number: US-NOVARTISTESTPH-NVSC2021US041367

PATIENT
  Sex: Female

DRUGS (1)
  1. XIIDRA [Suspect]
     Active Substance: LIFITEGRAST
     Indication: Product used for unknown indication
     Dosage: UNK
     Route: 047

REACTIONS (3)
  - Superficial injury of eye [Unknown]
  - Dry eye [Unknown]
  - Eye irritation [Unknown]
